FAERS Safety Report 23238727 (Version 2)
Quarter: 2023Q4

REPORT INFORMATION
  Report Type: Spontaneous
  Country: FR (occurrence: FR)
  Receive Date: 20231129
  Receipt Date: 20231215
  Transmission Date: 20240110
  Serious: Yes (Other)
  Sender: FDA-Public Use
  Company Number: FR-SANOFI-01844599

PATIENT

DRUGS (5)
  1. HYDROXYCHLOROQUINE [Suspect]
     Active Substance: HYDROXYCHLOROQUINE
     Indication: Fibromyalgia
     Dosage: UNK (PLAQUENIL)
     Route: 065
  2. BACLOFEN [Concomitant]
     Active Substance: BACLOFEN
  3. DULOXETINE [Concomitant]
     Active Substance: DULOXETINE
  4. VERAPAMIL [Concomitant]
     Active Substance: VERAPAMIL HYDROCHLORIDE
  5. PRAMIPEXOLE [Concomitant]
     Active Substance: PRAMIPEXOLE

REACTIONS (3)
  - Myasthenia gravis [Unknown]
  - Myalgia [Unknown]
  - Muscular weakness [Unknown]
